FAERS Safety Report 6178585-7 (Version None)
Quarter: 2009Q2

REPORT INFORMATION
  Report Type: 
  Country: None (occurrence: None)
  Receive Date: 20090430
  Receipt Date: 20090416
  Transmission Date: 20091009
  Serious: Yes (Death)
  Sender: FDA-Public Use
  Company Number: FDB-2009-012

PATIENT
  Age: 53 Year
  Sex: Male

DRUGS (3)
  1. FOREIGN I-131-MIBG DRUG PRODUCT [Suspect]
     Indication: CARCINOID TUMOUR
     Dosage: IV, 7400MGQ - 10MG MIBG
     Route: 042
  2. FLUOROURACIL [Concomitant]
  3. POTASSIUM IODIDE [Concomitant]

REACTIONS (5)
  - ACUTE HEPATIC FAILURE [None]
  - CONFUSIONAL STATE [None]
  - GENERAL PHYSICAL HEALTH DETERIORATION [None]
  - HEPATIC NECROSIS [None]
  - HEPATORENAL SYNDROME [None]
